FAERS Safety Report 6337114-5 (Version None)
Quarter: 2009Q3

REPORT INFORMATION
  Report Type: 
  Country: None (occurrence: None)
  Receive Date: 20090831
  Receipt Date: 20090820
  Transmission Date: 20100115
  Serious: Yes (Other)
  Sender: FDA-Public Use
  Company Number: 2009VX001248

PATIENT
  Age: 74 Year
  Sex: Male

DRUGS (1)
  1. IONIL T PLUS SHAMPOO [Suspect]
     Indication: SQUAMOUS CELL CARCINOMA
     Dosage: TOP
     Route: 061
     Dates: end: 20090701

REACTIONS (1)
  - SQUAMOUS CELL CARCINOMA OF SKIN [None]
